FAERS Safety Report 7135512-3 (Version None)
Quarter: 2010Q4

REPORT INFORMATION
  Report Type: 
  Country: None (occurrence: None)
  Receive Date: 20101203
  Receipt Date: 20101123
  Transmission Date: 20110411
  Serious: Yes (Other)
  Sender: FDA-Public Use
  Company Number: US-SANOFI-AVENTIS-2010SA064595

PATIENT
  Age: 67 Year
  Sex: Female
  Weight: 108.8 kg

DRUGS (11)
  1. PLAVIX [Suspect]
     Route: 048
     Dates: start: 20091201
  2. PLAVIX [Suspect]
     Route: 048
  3. RANOLAZINE [Concomitant]
     Indication: ANGINA PECTORIS
     Dates: start: 20091201
  4. AMLODIPINE BESILATE [Concomitant]
     Indication: HYPERTENSION
     Dates: start: 20091201
  5. IMDUR [Concomitant]
     Indication: CORONARY ARTERY DISEASE
     Dates: start: 20091201
  6. LEVOTHYROXINE SODIUM [Concomitant]
  7. ZOCOR [Concomitant]
     Dates: start: 20091201
  8. TRANXENE [Concomitant]
  9. GLYCERYL TRINITRATE [Concomitant]
  10. PEPCID [Concomitant]
     Route: 048
  11. ALLEGRA [Concomitant]
     Route: 048

REACTIONS (3)
  - PHOTOPSIA [None]
  - VISUAL FIELD DEFECT [None]
  - VITREOUS DISORDER [None]
